FAERS Safety Report 13012114 (Version 2)
Quarter: 2016Q4

REPORT INFORMATION
  Report Type: Spontaneous
  Country: JP (occurrence: JP)
  Receive Date: 20161209
  Receipt Date: 20161216
  Transmission Date: 20170207
  Serious: Yes (Other)
  Sender: FDA-Public Use
  Company Number: PHJP2016JP035562

PATIENT
  Sex: Female

DRUGS (21)
  1. EURAX H [Concomitant]
     Dosage: 1 DF, UNK
     Route: 065
     Dates: start: 20151119, end: 20151119
  2. POPIYODON [Concomitant]
     Dosage: UNK
     Route: 065
     Dates: start: 20151119, end: 20151119
  3. EXJADE [Suspect]
     Active Substance: DEFERASIROX
     Indication: AUTOIMMUNE PANCYTOPENIA
     Dosage: 625 MG, UNK
     Route: 048
     Dates: start: 20151112, end: 20151118
  4. EXJADE [Suspect]
     Active Substance: DEFERASIROX
     Dosage: 375 MG, UNK
     Route: 048
     Dates: start: 20151119, end: 20151202
  5. ZOLPIDEM TARTRATE. [Concomitant]
     Active Substance: ZOLPIDEM TARTRATE
     Indication: PRODUCT USED FOR UNKNOWN INDICATION
     Dosage: 5 MG, QD
     Route: 065
     Dates: start: 20151112
  6. EURAX H [Concomitant]
     Dosage: 1 DF, UNK
     Route: 065
     Dates: start: 20151203, end: 20151203
  7. LOXONIN [Concomitant]
     Active Substance: LOXOPROFEN SODIUM
     Indication: PRODUCT USED FOR UNKNOWN INDICATION
     Dosage: UNK
     Route: 065
     Dates: start: 20151112, end: 20151112
  8. LOXONIN [Concomitant]
     Active Substance: LOXOPROFEN SODIUM
     Dosage: UNK
     Route: 065
     Dates: start: 20151126, end: 20151126
  9. POPIYODON [Concomitant]
     Indication: PRODUCT USED FOR UNKNOWN INDICATION
     Dosage: UNK
     Route: 065
     Dates: start: 20151112, end: 20151112
  10. EURAX H [Concomitant]
     Dosage: 1 DF, UNK
     Route: 065
     Dates: start: 20151126, end: 20151126
  11. KAKKONTO [Concomitant]
     Active Substance: HERBALS
     Indication: PRODUCT USED FOR UNKNOWN INDICATION
     Dosage: 2.5 G, TID
     Route: 065
     Dates: start: 20151112
  12. EURAX H [Concomitant]
     Indication: PRODUCT USED FOR UNKNOWN INDICATION
     Dosage: 1 DF, UNK
     Route: 065
     Dates: start: 20151112, end: 20151112
  13. ROZEREM [Concomitant]
     Active Substance: RAMELTEON
     Indication: PRODUCT USED FOR UNKNOWN INDICATION
     Dosage: 8 MG, QD
     Route: 065
     Dates: start: 20151112
  14. LOXONIN [Concomitant]
     Active Substance: LOXOPROFEN SODIUM
     Dosage: UNK
     Route: 065
     Dates: start: 20151119, end: 20151119
  15. POPIYODON [Concomitant]
     Dosage: UNK
     Route: 065
     Dates: start: 20151126, end: 20151126
  16. POPIYODON [Concomitant]
     Dosage: UNK
     Route: 065
     Dates: start: 20151203, end: 20151203
  17. LOXONIN [Concomitant]
     Active Substance: LOXOPROFEN SODIUM
     Dosage: UNK
     Route: 065
     Dates: start: 20151203, end: 20151203
  18. PRALIA [Concomitant]
     Active Substance: DENOSUMAB
     Indication: PRODUCT USED FOR UNKNOWN INDICATION
     Dosage: 1 ML, UNK
     Route: 058
  19. QUETIAPINE. [Concomitant]
     Active Substance: QUETIAPINE
     Indication: PRODUCT USED FOR UNKNOWN INDICATION
     Dosage: 12.5 MG, QD
     Route: 065
     Dates: start: 20151112
  20. TEPRENONE [Concomitant]
     Active Substance: TEPRENONE
     Indication: PRODUCT USED FOR UNKNOWN INDICATION
     Dosage: 5 G, BID
     Route: 065
     Dates: start: 20151119
  21. VERAPAMIL HCL [Concomitant]
     Active Substance: VERAPAMIL HYDROCHLORIDE
     Indication: PRODUCT USED FOR UNKNOWN INDICATION
     Dosage: 40 MG, TID
     Route: 065
     Dates: start: 20151126

REACTIONS (4)
  - Lipoma [Unknown]
  - Vision blurred [Recovered/Resolved]
  - Epistaxis [Unknown]
  - Palpitations [Unknown]

NARRATIVE: CASE EVENT DATE: 201511
